FAERS Safety Report 18255253 (Version 1)
Quarter: 2020Q3

REPORT INFORMATION
  Report Type: Spontaneous
  Country: US (occurrence: US)
  Receive Date: 20200911
  Receipt Date: 20200911
  Transmission Date: 20201103
  Serious: Yes (Hospitalization)
  Sender: FDA-Public Use
  Company Number: US-QILU PHARMACEUTICAL CO.LTD.-QLU-000239-2020

PATIENT
  Age: 27 Year
  Sex: Female

DRUGS (8)
  1. LITHIUM. [Suspect]
     Active Substance: LITHIUM
     Dosage: 1950 MILLIGRAM, TOTAL DAILY DOSE
     Route: 048
  2. OLANZAPINE. [Suspect]
     Active Substance: OLANZAPINE
     Indication: AGITATION
     Dosage: ?40 MG (ON HOSPITAL DAY 1), TOTAL DAILY DOSE
     Route: 065
  3. LITHIUM. [Suspect]
     Active Substance: LITHIUM
     Dosage: 1800 MILLIGRAM, PER DAY
     Route: 048
  4. OLANZAPINE. [Suspect]
     Active Substance: OLANZAPINE
     Dosage: 25 MILLIGRAM (ON HOSPITAL DAY 16)
     Route: 065
  5. RISPERIDONE. [Concomitant]
     Active Substance: RISPERIDONE
     Indication: PRODUCT USED FOR UNKNOWN INDICATION
     Dosage: 3 MILLIGRAM PER DAY
     Route: 065
  6. LITHIUM. [Suspect]
     Active Substance: LITHIUM
     Indication: PRODUCT USED FOR UNKNOWN INDICATION
     Dosage: 300 MILLIGRAM, BID
     Route: 048
  7. LITHIUM. [Suspect]
     Active Substance: LITHIUM
     Dosage: 1500 MILLIGRAM PER DAY
     Route: 048
  8. LITHIUM. [Suspect]
     Active Substance: LITHIUM
     Dosage: 1350 MILLIGRAM, TOTAL DAILY DOSE
     Route: 048

REACTIONS (3)
  - Transaminases increased [Unknown]
  - Antipsychotic drug level below therapeutic [Recovering/Resolving]
  - Oedema [Recovered/Resolved]
